FAERS Safety Report 20629490 (Version 2)
Quarter: 2022Q3

REPORT INFORMATION
  Report Type: Spontaneous
  Country: IE (occurrence: IE)
  Receive Date: 20220323
  Receipt Date: 20220810
  Transmission Date: 20221026
  Serious: Yes (Life-Threatening, Other)
  Sender: FDA-Public Use
  Company Number: None

PATIENT
  Age: 14 Year
  Sex: Female

DRUGS (23)
  1. FLUOXETINE HYDROCHLORIDE [Suspect]
     Active Substance: FLUOXETINE HYDROCHLORIDE
     Indication: Anxiety
     Dosage: 20 MG, EACH MORNING
     Route: 048
     Dates: start: 201911, end: 20201101
  2. FLUOXETINE HYDROCHLORIDE [Suspect]
     Active Substance: FLUOXETINE HYDROCHLORIDE
     Dosage: 2 DOSAGE FORM, EACH MORNING (FLUZAC 20 MG, TWO CAPSULES IN THE MORNING)
     Route: 065
  3. FLUOXETINE HYDROCHLORIDE [Suspect]
     Active Substance: FLUOXETINE HYDROCHLORIDE
     Dosage: 2 DOSAGE FORM, EACH MORNING (PROZAMEL 20 MG, TWO CAPSULES IN THE MORNING)
     Route: 065
     Dates: end: 202103
  4. RIVOTRIL [Suspect]
     Active Substance: CLONAZEPAM
     Indication: Anxiety
     Dosage: 0.5 MG, BID
     Route: 048
     Dates: start: 20200620, end: 20200627
  5. LISDEXAMFETAMINE DIMESYLATE [Concomitant]
     Active Substance: LISDEXAMFETAMINE DIMESYLATE
     Indication: Product used for unknown indication
     Dosage: UNK UNK, OTHER (IN THE MORNING)
     Dates: start: 20200710
  6. LISDEXAMFETAMINE DIMESYLATE [Concomitant]
     Active Substance: LISDEXAMFETAMINE DIMESYLATE
     Dosage: UNK UNK, OTHER (IN THE MORNING)
     Dates: start: 20200623
  7. LISDEXAMFETAMINE DIMESYLATE [Concomitant]
     Active Substance: LISDEXAMFETAMINE DIMESYLATE
     Dosage: UNK UNK, UNKNOWN
     Dates: start: 20210401
  8. LISDEXAMFETAMINE DIMESYLATE [Concomitant]
     Active Substance: LISDEXAMFETAMINE DIMESYLATE
     Dosage: UNK UNK, OTHER (IN THE MORNING)
     Dates: start: 20201109
  9. LISDEXAMFETAMINE DIMESYLATE [Concomitant]
     Active Substance: LISDEXAMFETAMINE DIMESYLATE
     Dosage: UNK UNK, OTHER (IN THE MORNING)
     Dates: start: 20200722
  10. OLANZAPINE [Concomitant]
     Active Substance: OLANZAPINE
     Indication: Product used for unknown indication
     Dosage: ZALASTA/OLANZAPINE TEVA: 2.5MG IN THE MORNING, 5MG AT 5PM
     Route: 048
     Dates: start: 20200630
  11. CONCERTA [Concomitant]
     Active Substance: METHYLPHENIDATE HYDROCHLORIDE
     Indication: Product used for unknown indication
     Dosage: 36 MG, OTHER (IN THE MORNING)
     Route: 065
     Dates: start: 20200602
  12. CONCERTA [Concomitant]
     Active Substance: METHYLPHENIDATE HYDROCHLORIDE
     Dosage: 27 MG, OTHER (IN THE MORNING)
     Dates: start: 20200616
  13. CONCERTA [Concomitant]
     Active Substance: METHYLPHENIDATE HYDROCHLORIDE
     Dosage: 18 MG, OTHER (IN THE MORNING)
     Dates: start: 20200124
  14. CONCERTA [Concomitant]
     Active Substance: METHYLPHENIDATE HYDROCHLORIDE
     Dosage: 36 MG, OTHER (IN THE MORNING)
     Dates: start: 20200228
  15. ARIPIPRAZOLE [Concomitant]
     Active Substance: ARIPIPRAZOLE
     Indication: Product used for unknown indication
     Dosage: 5 MG, OTHER (ONE TABLET TWICE DAILY A A HALF TABLET AT NIGHT)
     Dates: start: 20191109
  16. ARIPIPRAZOLE [Concomitant]
     Active Substance: ARIPIPRAZOLE
     Dosage: UNK UNK, UNKNOWN
     Dates: start: 20200131, end: 20200519
  17. ARIPIPRAZOLE [Concomitant]
     Active Substance: ARIPIPRAZOLE
     Dosage: UNK UNK, UNKNOWN
     Route: 048
     Dates: start: 20190717
  18. MELATONIN [Concomitant]
     Active Substance: MELATONIN
     Indication: Product used for unknown indication
     Dosage: 2 MG, DAILY (CIRCADIN/MELATONIN: AT NIGHT)
     Dates: start: 20191217
  19. ALTAVITA D3 [Concomitant]
     Indication: Product used for unknown indication
     Dosage: 25000 INTERNATIONAL UNIT, UNKNOWN
     Dates: start: 20191204
  20. ALTAVITA D3 [Concomitant]
     Dosage: 25000 INTERNATIONAL UNIT, 2/M (EVERY TWO WEEKS)
     Dates: start: 20200224
  21. ALTAVITA D3 [Concomitant]
     Dosage: 25000 INTERNATIONAL UNIT, MONTHLY (1/M)
     Dates: start: 20200131
  22. MEFENAMIC ACID [Concomitant]
     Active Substance: MEFENAMIC ACID
     Indication: Product used for unknown indication
     Dosage: UNK UNK, UNKNOWN
     Dates: start: 20200114
  23. DIAZEPAM [Concomitant]
     Active Substance: DIAZEPAM
     Indication: Product used for unknown indication
     Dosage: UNK
     Dates: start: 201909, end: 202001

REACTIONS (4)
  - Judgement impaired [Recovered/Resolved]
  - Scar [Recovered/Resolved]
  - Intentional self-injury [Recovered/Resolved]
  - Off label use [Unknown]

NARRATIVE: CASE EVENT DATE: 20200227
